FAERS Safety Report 9485990 (Version 1)
Quarter: 2013Q3

REPORT INFORMATION
  Report Type: Spontaneous
  Country: US (occurrence: None)
  Receive Date: 20130823
  Receipt Date: 20130823
  Transmission Date: 20140515
  Serious: Yes (Death, Life-Threatening)
  Sender: FDA-Public Use
  Company Number: 1860842

PATIENT
  Age: 76 Year
  Sex: Male

DRUGS (1)
  1. MORPHINE SULFATE INJ, USP (MORPHINE SULPHATE) [Suspect]
     Dates: start: 20130807

REACTIONS (3)
  - Brain injury [None]
  - Unresponsive to stimuli [None]
  - Anoxia [None]
